FAERS Safety Report 7701347-3 (Version None)
Quarter: 2011Q3

REPORT INFORMATION
  Report Type: 
  Country: None (occurrence: None)
  Receive Date: 20110817
  Receipt Date: 20110805
  Transmission Date: 20111222
  Serious: Yes (Other)
  Sender: FDA-Public Use
  Company Number: 2011MA011758

PATIENT
  Sex: Male

DRUGS (8)
  1. IRBESARTAN SANOFI PHARMA [Concomitant]
  2. VERAPAMIL HYDROCHLORIDE [Suspect]
     Dosage: 40 MG; TID;
     Dates: start: 20101101
  3. BISOPROLOL FUMARATE [Suspect]
     Dosage: 10 MG; QD;
     Dates: start: 20101101
  4. CLOPIDOGREL [Concomitant]
  5. ACETYLSALICYLIC ACID SRT [Concomitant]
  6. RANITIDINE ACCORD HEALTHCARE [Concomitant]
  7. FUROSEMIDE BRISTOL LABS [Concomitant]
  8. DIGOXIN [Suspect]
     Dosage: 250 MCG; QD;

REACTIONS (1)
  - DYSPNOEA [None]
